FAERS Safety Report 11517433 (Version 1)
Quarter: 2015Q3

REPORT INFORMATION
  Report Type: Spontaneous
  Country: US (occurrence: US)
  Receive Date: 20150917
  Receipt Date: 20150917
  Transmission Date: 20151125
  Serious: Yes (Other)
  Sender: FDA-Public Use
  Company Number: US-PFIZER INC-2015303298

PATIENT
  Age: 70 Year
  Sex: Female
  Weight: 53.97 kg

DRUGS (2)
  1. GABAPENTIN. [Suspect]
     Active Substance: GABAPENTIN
     Indication: NEUROPATHY PERIPHERAL
     Dosage: 300 MG, 3X/DAY
  2. GABAPENTIN. [Suspect]
     Active Substance: GABAPENTIN
     Dosage: AN EXTRA ONE, KEPT ADDING ONE DOSE

REACTIONS (4)
  - Breast cancer female [Unknown]
  - Drug ineffective [Unknown]
  - Product use issue [Unknown]
  - Cervix carcinoma [Unknown]
